FAERS Safety Report 4586748-7 (Version None)
Quarter: 2005Q1

REPORT INFORMATION
  Report Type: 
  Country: None (occurrence: None)
  Receive Date: 20050217
  Receipt Date: 20050217
  Transmission Date: 20050727
  Serious: Yes (Death)
  Sender: FDA-Public Use
  Company Number: None

PATIENT
  Sex: Male
  Weight: 54.8852 kg

DRUGS (7)
  1. CETUXIMAB   100MG   IMCLONE [Suspect]
     Indication: COLORECTAL CANCER METASTATIC
     Dosage: 400MG   WEEKLY   INTRAVENOU
     Route: 042
     Dates: start: 20050103, end: 20050214
  2. OXALIPLATIN [Suspect]
     Indication: COLORECTAL CANCER METASTATIC
     Dosage: 137.7 MG   Q 2 WEEKS   INTRAVENOU
     Route: 042
     Dates: start: 20050103, end: 20050207
  3. EPOGEN [Concomitant]
  4. MEGACE [Concomitant]
  5. COUMADIN [Concomitant]
  6. FLUOROURACIL [Concomitant]
  7. LV [Concomitant]

REACTIONS (3)
  - ABDOMINAL DISCOMFORT [None]
  - FATIGUE [None]
  - RECTAL TENESMUS [None]
